FAERS Safety Report 20867232 (Version 1)
Quarter: 2022Q2

REPORT INFORMATION
  Report Type: Spontaneous
  Country: US (occurrence: None)
  Receive Date: 20220523
  Receipt Date: 20220523
  Transmission Date: 20220720
  Serious: Yes (Hospitalization)
  Sender: FDA-Public Use
  Company Number: None

PATIENT
  Age: 57 Year
  Sex: Male
  Weight: 91 kg

DRUGS (5)
  1. NIRMATRELVIR\RITONAVIR [Suspect]
     Active Substance: NIRMATRELVIR\RITONAVIR
     Indication: COVID-19
     Dosage: 3 TOT - TOTAL TWICE A DAY ?
     Dates: start: 20220511, end: 20220515
  2. tacrolimus 0.5 mg po BID [Concomitant]
  3. Cellcept 500 mg BID [Concomitant]
  4. metoprolol IR 50 mg BID [Concomitant]
  5. ASPIRIN [Concomitant]
     Active Substance: ASPIRIN

REACTIONS (7)
  - Nausea [None]
  - Vomiting [None]
  - Headache [None]
  - Acute kidney injury [None]
  - Cough [None]
  - Immunosuppressant drug level increased [None]
  - Therapy interrupted [None]

NARRATIVE: CASE EVENT DATE: 20220518
